FAERS Safety Report 4448881-X (Version None)
Quarter: 2004Q3

REPORT INFORMATION
  Report Type: 
  Country: None (occurrence: None)
  Receive Date: 20040909
  Receipt Date: 20040830
  Transmission Date: 20050211
  Serious: Yes (Hospitalization)
  Sender: FDA-Public Use
  Company Number: 2004231232US

PATIENT
  Sex: Female
  Weight: 90.7 kg

DRUGS (2)
  1. CELEBREX [Suspect]
     Dosage: ORAL
     Route: 048
     Dates: start: 20010101, end: 20020101
  2. BLOOD PRESSURE MEDICATION [Concomitant]

REACTIONS (1)
  - RENAL CELL CARCINOMA STAGE UNSPECIFIED [None]
